FAERS Safety Report 7792395-6 (Version None)
Quarter: 2011Q3

REPORT INFORMATION
  Report Type: 
  Country: None (occurrence: None)
  Receive Date: 20110930
  Receipt Date: 20110930
  Transmission Date: 20111222
  Serious: Yes (Life-Threatening, Disabling)
  Sender: FDA-Public Use
  Company Number: None

PATIENT
  Sex: Male
  Weight: 70.3075 kg

DRUGS (1)
  1. ZOCOR [Suspect]
     Indication: BLOOD CHOLESTEROL
     Dosage: 20MG 1X A DAY
     Dates: start: 20090601, end: 20110101

REACTIONS (6)
  - PAIN [None]
  - RENAL DISORDER [None]
  - BACK PAIN [None]
  - CHEST PAIN [None]
  - LOSS OF CONSCIOUSNESS [None]
  - RENAL PAIN [None]
